FAERS Safety Report 8547216-0 (Version None)
Quarter: 2012Q3

REPORT INFORMATION
  Report Type: 
  Country: None (occurrence: None)
  Receive Date: 20120727
  Receipt Date: 20120320
  Transmission Date: 20120928
  Serious: No
  Sender: FDA-Public Use
  Company Number: US-ASTRAZENECA-2012SE13751

PATIENT
  Age: 55 Year
  Sex: Female
  Weight: 65.8 kg

DRUGS (12)
  1. SEROQUEL [Suspect]
     Indication: DEPRESSION
     Route: 048
  2. EFFEXOR [Suspect]
     Route: 065
  3. DICYCLOMINE [Concomitant]
     Indication: ABDOMINAL PAIN UPPER
  4. SEROQUEL [Suspect]
     Route: 048
  5. SEROQUEL [Suspect]
     Route: 048
  6. SEROQUEL [Suspect]
     Route: 048
  7. SEROQUEL [Suspect]
     Indication: ANGER
     Route: 048
  8. SEROQUEL [Suspect]
     Indication: SUPPORTIVE CARE
     Route: 048
  9. SEROQUEL [Suspect]
     Route: 048
  10. SEROQUEL [Suspect]
     Route: 048
  11. MOBIC [Concomitant]
     Indication: BACK PAIN
  12. SEROQUEL [Suspect]
     Route: 048

REACTIONS (12)
  - BACK PAIN [None]
  - HOT FLUSH [None]
  - DEPRESSIVE SYMPTOM [None]
  - MIDDLE INSOMNIA [None]
  - THERAPEUTIC RESPONSE UNEXPECTED [None]
  - DRUG DOSE OMISSION [None]
  - DYSPNOEA [None]
  - FATIGUE [None]
  - INSOMNIA [None]
  - HEADACHE [None]
  - DRUG WITHDRAWAL SYNDROME [None]
  - OFF LABEL USE [None]
